FAERS Safety Report 4676002-7 (Version None)
Quarter: 2005Q2

REPORT INFORMATION
  Report Type: 
  Country: None (occurrence: None)
  Receive Date: 20050527
  Receipt Date: 20050425
  Transmission Date: 20051028
  Serious: Yes (Other)
  Sender: FDA-Public Use
  Company Number: US-GLAXOSMITHKLINE-A0555587A

PATIENT

DRUGS (3)
  1. WELLBUTRIN [Suspect]
     Indication: ILL-DEFINED DISORDER
     Route: 048
  2. EFFEXOR [Concomitant]
  3. RITALIN [Concomitant]

REACTIONS (1)
  - DEAFNESS UNILATERAL [None]
